FAERS Safety Report 4446286-9 (Version None)
Quarter: 2004Q3

REPORT INFORMATION
  Report Type: 
  Country: None (occurrence: None)
  Receive Date: 20040907
  Receipt Date: 20040720
  Transmission Date: 20050211
  Serious: Yes (Life-Threatening, Hospitalization)
  Sender: FDA-Public Use
  Company Number: 237570

PATIENT
  Age: 84 Year
  Sex: Male
  Weight: 86.2 kg

DRUGS (1)
  1. NOVOLOG [Suspect]
     Indication: INSULIN-REQUIRING TYPE II DIABETES MELLITUS
     Dosage: 24 IU IN AM AND 14 IU IN PM, SUBCUTANEOUS
     Route: 058
     Dates: start: 20031001, end: 20031030

REACTIONS (4)
  - HYPOGLYCAEMIA [None]
  - HYPOGLYCAEMIC COMA [None]
  - MEDICATION ERROR [None]
  - ROAD TRAFFIC ACCIDENT [None]
